FAERS Safety Report 11432226 (Version 1)
Quarter: 2015Q3

REPORT INFORMATION
  Report Type: Spontaneous
  Country: US (occurrence: US)
  Receive Date: 20150828
  Receipt Date: 20150828
  Transmission Date: 20151125
  Serious: Yes (Other)
  Sender: FDA-Public Use
  Company Number: US-BAYER-2015-407423

PATIENT
  Age: 28 Year
  Sex: Male
  Weight: 90.7 kg

DRUGS (1)
  1. MIDOL COMPLETE [Suspect]
     Active Substance: ACETAMINOPHEN\CAFFEINE\PYRILAMINE MALEATE
     Indication: SUICIDE ATTEMPT
     Dosage: 12 DF, ONCE
     Dates: start: 20150817

REACTIONS (2)
  - Suicide attempt [Unknown]
  - Overdose [Unknown]

NARRATIVE: CASE EVENT DATE: 20150817
